FAERS Safety Report 23220021 (Version 1)
Quarter: 2023Q4

REPORT INFORMATION
  Report Type: Report from Study
  Country: MX (occurrence: MX)
  Receive Date: 20231122
  Receipt Date: 20231122
  Transmission Date: 20240109
  Serious: Yes (Disabling)
  Sender: FDA-Public Use
  Company Number: MX-ABBVIE-5506661

PATIENT
  Sex: Male
  Weight: 63 kg

DRUGS (1)
  1. VENCLEXTA [Suspect]
     Active Substance: VENETOCLAX
     Indication: Chronic lymphocytic leukaemia
     Dosage: VENCLEXTA STARTER PACK
     Route: 048
     Dates: start: 20231023

REACTIONS (11)
  - Bedridden [Recovering/Resolving]
  - Dizziness [Unknown]
  - Bone pain [Unknown]
  - Arthralgia [Unknown]
  - Nausea [Unknown]
  - Diarrhoea [Unknown]
  - Testicular pain [Unknown]
  - Eye pain [Unknown]
  - Eye swelling [Unknown]
  - Eye inflammation [Unknown]
  - Joint swelling [Unknown]

NARRATIVE: CASE EVENT DATE: 20230101
